FAERS Safety Report 12872645 (Version 1)
Quarter: 2016Q4

REPORT INFORMATION
  Report Type: Spontaneous
  Country: None (occurrence: ES)
  Receive Date: 20161021
  Receipt Date: 20161021
  Transmission Date: 20170207
  Serious: Yes (Other)
  Sender: FDA-Public Use
  Company Number: ES-MERZ NORTH AMERICA, INC.-16MRZ-00632

PATIENT
  Age: 45 Year
  Sex: Female
  Weight: 69 kg

DRUGS (4)
  1. XEOMIN [Suspect]
     Active Substance: INCOBOTULINUMTOXINA
     Indication: SKIN WRINKLING
     Dosage: 24 IU, 1 IN 1 TOTAL
     Dates: start: 20160919, end: 20160919
  2. MUSCLE  RELAXANTS [Concomitant]
     Active Substance: UNSPECIFIED INGREDIENT
     Indication: SCIATICA
     Dates: start: 201605
  3. CORTICOIDS [Concomitant]
     Active Substance: UNSPECIFIED INGREDIENT
     Indication: SCIATICA
     Route: 048
     Dates: start: 201604
  4. XEOMIN [Suspect]
     Active Substance: INCOBOTULINUMTOXINA
     Indication: SKIN COSMETIC PROCEDURE

REACTIONS (5)
  - Paraesthesia [Recovering/Resolving]
  - Muscle spasms [Recovering/Resolving]
  - Laryngeal discomfort [Recovering/Resolving]
  - Injection site oedema [Recovering/Resolving]
  - Drug hypersensitivity [Recovering/Resolving]

NARRATIVE: CASE EVENT DATE: 20160929
